FAERS Safety Report 6274713-3 (Version None)
Quarter: 2009Q3

REPORT INFORMATION
  Report Type: 
  Country: None (occurrence: None)
  Receive Date: 20090721
  Receipt Date: 20090713
  Transmission Date: 20100115
  Serious: Yes (Other)
  Sender: FDA-Public Use
  Company Number: ES-BIOGENIDEC-2009BI021704

PATIENT
  Age: 30 Year
  Sex: Female

DRUGS (4)
  1. AVONEX [Suspect]
     Indication: MULTIPLE SCLEROSIS
     Route: 058
     Dates: start: 20020601
  2. IBUPROFENO [Concomitant]
     Route: 048
     Dates: start: 20070101
  3. MELIANE [Concomitant]
     Route: 048
     Dates: start: 20070101
  4. DOBUPAL RETARD [Concomitant]
     Indication: DECREASED APPETITE
     Route: 048
     Dates: start: 20070101

REACTIONS (2)
  - COLITIS ISCHAEMIC [None]
  - DRUG INTERACTION [None]
